FAERS Safety Report 8242693 (Version 8)
Quarter: 2012Q4

REPORT INFORMATION
  Report Type: Report from Study
  Country: BE (occurrence: BE)
  Receive Date: 20111114
  Receipt Date: 20121109
  Transmission Date: 20130627
  Serious: Yes (Hospitalization, Other)
  Sender: FDA-Public Use
  Company Number: BE-CELGENEUS-013-21880-11103541

PATIENT
  Age: 65 Year
  Sex: Male
  Weight: 102 kg

DRUGS (23)
  1. REVLIMID [Suspect]
     Indication: MULTIPLE MYELOMA
     Dosage: 12.5 Milligram
     Route: 048
     Dates: start: 20111017, end: 20111025
  2. REVLIMID [Suspect]
     Dosage: 12.5 Milligram
     Route: 048
     Dates: start: 20111105, end: 20111125
  3. REVLIMID [Suspect]
     Dosage: 12.5 Milligram
     Route: 048
     Dates: start: 20111203, end: 20111210
  4. REVLIMID [Suspect]
     Dosage: 25 Milligram
     Route: 048
     Dates: start: 20111223, end: 20120112
  5. REVLIMID [Suspect]
     Dosage: 25 Milligram
     Route: 048
     Dates: start: 20120120, end: 20120131
  6. REVLIMID [Suspect]
     Dosage: 25 Milligram
     Route: 048
     Dates: start: 20120211, end: 20120302
  7. REVLIMID [Suspect]
     Dosage: 25 Milligram
     Route: 048
     Dates: start: 20120315, end: 20120404
  8. AUGMENTIN [Suspect]
     Indication: PNEUMONIA
     Route: 065
     Dates: start: 20111029, end: 20111105
  9. AUGMENTIN [Suspect]
     Indication: PNEUMOPATHY
     Route: 041
     Dates: start: 20111210
  10. DEXAMETHASONE [Concomitant]
     Indication: MULTIPLE MYELOMA
     Route: 048
     Dates: start: 20111017, end: 20111114
  11. DEXAMETHASONE [Concomitant]
     Route: 048
     Dates: start: 20111115, end: 20111204
  12. DEXAMETHASONE [Concomitant]
     Route: 048
     Dates: start: 20111205, end: 20120102
  13. DEXAMETHASONE [Concomitant]
     Route: 048
     Dates: start: 20120103, end: 20120131
  14. COVERSYL [Concomitant]
     Indication: HYPERTENSION ARTERIAL
     Dosage: 10 Milligram
     Route: 048
     Dates: start: 20120201
  15. CRESTOR [Concomitant]
     Indication: HYPERTENSION ARTERIAL
     Dosage: 10 Milligram
     Route: 048
  16. ASAFLOW [Concomitant]
     Indication: HYPERTENSION ARTERIAL
     Dosage: 80 Milligram
     Route: 048
  17. CONCOR [Concomitant]
     Indication: HYPERTENSION ARTERIAL
     Dosage: 10 Milligram
     Route: 048
  18. RANITIDINE [Concomitant]
     Indication: PROPHYLAXIS
     Dosage: 150 Milligram
     Route: 048
     Dates: start: 20111023
  19. EMCONCOR [Concomitant]
     Indication: HYPERTENSION ARTERIAL
     Dosage: 10 Milligram
     Route: 048
  20. ADRIAMYCIN [Concomitant]
     Indication: MULTIPLE MYELOMA
     Route: 041
     Dates: start: 20111017, end: 20111017
  21. ADRIAMYCIN [Concomitant]
     Route: 041
     Dates: start: 20111205, end: 20111205
  22. ADRIAMYCIN [Concomitant]
     Route: 041
     Dates: start: 20120119, end: 20120119
  23. LMWH [Concomitant]
     Indication: PROPHYLAXIS
     Route: 065

REACTIONS (4)
  - Pneumonia [Recovered/Resolved with Sequelae]
  - Pneumonia [Recovered/Resolved with Sequelae]
  - Hepatocellular injury [Recovered/Resolved]
  - Left ventricular dysfunction [Not Recovered/Not Resolved]
